FAERS Safety Report 7785335-7 (Version None)
Quarter: 2011Q3

REPORT INFORMATION
  Report Type: 
  Country: None (occurrence: None)
  Receive Date: 20110929
  Receipt Date: 20110923
  Transmission Date: 20111222
  Serious: Yes (Other)
  Sender: FDA-Public Use
  Company Number: US-PFIZER INC-2010000274

PATIENT
  Sex: Female
  Weight: 48.526 kg

DRUGS (2)
  1. LYRICA [Suspect]
     Indication: NEURALGIA
     Dosage: 50 MG AM, 75MG PM
     Route: 048
     Dates: start: 20090101
  2. LYRICA [Suspect]
     Indication: VULVOVAGINAL PAIN
     Dosage: 50 MG, 2X/DAY
     Route: 048
     Dates: start: 20090101, end: 20090101

REACTIONS (6)
  - NEURALGIA [None]
  - FLUID RETENTION [None]
  - DISTURBANCE IN ATTENTION [None]
  - WEIGHT INCREASED [None]
  - DRUG INEFFECTIVE [None]
  - BREAKTHROUGH PAIN [None]
